FAERS Safety Report 8799101 (Version 1)
Quarter: 2012Q4

REPORT INFORMATION
  Report Type: 
  Country: US (occurrence: US)
  Receive Date: 20120920
  Receipt Date: 20120920
  Transmission Date: 20130627
  Serious: No
  Sender: FDA-Public Use
  Company Number: US-ASTRAZENECA-2011SE68569

PATIENT
  Sex: Female

DRUGS (11)
  1. LISINOPRIL [Suspect]
     Route: 048
  2. CITALOPRAM HYDROBROMIDE [Concomitant]
  3. ARMOUR THYROID [Concomitant]
  4. ESTRADIOL [Concomitant]
  5. EPIPEN AUTO INJECTOR [Concomitant]
  6. HYDROCHLOROTHIAZIDE [Concomitant]
  7. NASONEX [Concomitant]
  8. SINGULAIR [Concomitant]
  9. VENTOLIN HFA [Concomitant]
  10. ADVAIR HFA [Concomitant]
  11. ADVAIR [Concomitant]

REACTIONS (1)
  - Post-traumatic stress disorder [Unknown]
